FAERS Safety Report 6069290-6 (Version None)
Quarter: 2009Q1

REPORT INFORMATION
  Report Type: 
  Country: None (occurrence: None)
  Receive Date: 20090206
  Receipt Date: 20090125
  Transmission Date: 20090719
  Serious: Yes (Hospitalization)
  Sender: FDA-Public Use
  Company Number: IL-PFIZER INC-2009154040

PATIENT

DRUGS (9)
  1. SILDENAFIL CITRATE [Suspect]
     Indication: PULMONARY HYPERTENSION
     Dosage: 40 MG, 3X/DAY
     Route: 048
     Dates: start: 20041130
  2. WARFARIN [Concomitant]
     Dosage: UNK
     Route: 048
     Dates: start: 20010301
  3. FUROSEMIDE [Concomitant]
     Dosage: UNK
     Route: 048
     Dates: start: 20040419
  4. ALDOSPIRONE [Concomitant]
     Dosage: UNK
     Route: 048
     Dates: start: 20080313
  5. DILTIAZEM [Concomitant]
     Dosage: UNK
     Route: 048
     Dates: start: 20010301
  6. FOLIC ACID [Concomitant]
     Dosage: UNK
     Route: 048
     Dates: start: 20011001
  7. CYANOCOBALAMIN/PYRIDOXINE HYDROCHLORIDE/THIAMINE NITRATE [Concomitant]
     Dosage: UNK
     Route: 048
     Dates: start: 20050101
  8. EPOPROSTENOL [Concomitant]
     Dosage: UNK
     Route: 042
     Dates: start: 20030224
  9. METOLAZONE [Concomitant]
     Dosage: UNK
     Route: 048
     Dates: start: 20081207

REACTIONS (1)
  - ASCITES [None]
